FAERS Safety Report 8208451-4 (Version None)
Quarter: 2012Q1

REPORT INFORMATION
  Report Type: 
  Country: None (occurrence: None)
  Receive Date: 20120314
  Receipt Date: 20120312
  Transmission Date: 20120608
  Serious: Yes (Other)
  Sender: FDA-Public Use
  Company Number: US-PFIZER INC-2012065290

PATIENT
  Sex: Female
  Weight: 90.7 kg

DRUGS (6)
  1. ACCUPRIL [Concomitant]
     Indication: HYPERTENSION
     Dosage: 10 MG, DAILY
  2. LIPITOR [Concomitant]
     Indication: BLOOD CHOLESTEROL INCREASED
     Dosage: 10 MG, DAILY
  3. CELEXA [Concomitant]
     Indication: DEPRESSION
     Dosage: 40 MG, DAILY
  4. LYRICA [Suspect]
     Indication: LIMB DISCOMFORT
     Dosage: 50 MG, 3X/DAY
     Route: 048
     Dates: start: 20110401
  5. DETROL LA [Suspect]
     Indication: HYPERTONIC BLADDER
     Dosage: 4 MG, DAILY
     Dates: start: 20110401
  6. JANUVIA [Concomitant]
     Indication: DIABETES MELLITUS
     Dosage: 100 MG, DAILY

REACTIONS (2)
  - STAG HORN CALCULUS [None]
  - BLOOD CALCIUM ABNORMAL [None]
